FAERS Safety Report 19132029 (Version 1)
Quarter: 2021Q2

REPORT INFORMATION
  Report Type: Spontaneous
  Country: ES (occurrence: ES)
  Receive Date: 20210413
  Receipt Date: 20210413
  Transmission Date: 20210717
  Serious: Yes (Death, Other)
  Sender: FDA-Public Use
  Company Number: ES-TEVA-2021-ES-1900453

PATIENT
  Age: 54 Year
  Sex: Male

DRUGS (5)
  1. ERITROMICINA (1419A) [Suspect]
     Active Substance: ERYTHROMYCIN
     Indication: RESPIRATORY TRACT INFECTION
     Dosage: 1GRAM
     Route: 042
     Dates: start: 20201106, end: 20201109
  2. TEICOPLANINA (2474A) [Concomitant]
     Active Substance: TEICOPLANIN
     Indication: RESPIRATORY TRACT INFECTION
     Dosage: 400MILLIGRAM
     Route: 042
     Dates: start: 20201103, end: 20201106
  3. FLUCONAZOL (2432A) [Suspect]
     Active Substance: FLUCONAZOLE
     Indication: RESPIRATORY TRACT INFECTION
     Dosage: 200MILLIGRAM
     Route: 042
     Dates: start: 20201106, end: 20201109
  4. LINEZOLID (1279A) [Suspect]
     Active Substance: LINEZOLID
     Indication: RESPIRATORY TRACT INFECTION
     Dosage: 1.2GRAM
     Route: 042
     Dates: start: 20201106, end: 20201110
  5. MEROPENEM (7155A) [Concomitant]
     Active Substance: MEROPENEM
     Indication: RESPIRATORY TRACT INFECTION
     Dosage: 3GRAM
     Route: 042
     Dates: start: 20201103, end: 20201113

REACTIONS (1)
  - Hepatic cytolysis [Recovered/Resolved]

NARRATIVE: CASE EVENT DATE: 20201109
